FAERS Safety Report 9291679 (Version 1)
Quarter: 2013Q2

REPORT INFORMATION
  Report Type: Report from Study
  Country: BE (occurrence: BE)
  Receive Date: 20130515
  Receipt Date: 20130515
  Transmission Date: 20140414
  Serious: Yes (Death)
  Sender: FDA-Public Use
  Company Number: BE-ROCHE-1224846

PATIENT
  Sex: Female

DRUGS (1)
  1. AVASTIN [Suspect]
     Indication: OVARIAN CANCER
     Dosage: 6 VIALS OF 100 MG/4 ML AND 15 VIALS OF 400 MG/16 ML
     Route: 065
     Dates: start: 20130104, end: 20130329

REACTIONS (1)
  - Disease progression [Fatal]
